FAERS Safety Report 26021825 (Version 1)
Quarter: 2025Q4

REPORT INFORMATION
  Report Type: Spontaneous
  Country: US (occurrence: None)
  Receive Date: 20251110
  Receipt Date: 20251110
  Transmission Date: 20260117
  Serious: Yes (Hospitalization)
  Sender: FDA-CTU
  Company Number: None

PATIENT
  Age: 47 Year
  Sex: Female
  Weight: 90 kg

DRUGS (9)
  1. VERZENIO [Suspect]
     Active Substance: ABEMACICLIB
     Indication: Breast cancer
     Dates: start: 20240301, end: 20251106
  2. ANASTROZOLE [Concomitant]
     Active Substance: ANASTROZOLE
  3. PANTOPRAZOLE [Concomitant]
     Active Substance: PANTOPRAZOLE
  4. ESCITALOPRAM [Concomitant]
     Active Substance: ESCITALOPRAM OXALATE
  5. Calcium w D [Concomitant]
  6. COLLAGEN [Concomitant]
     Active Substance: COLLAGEN
  7. Multivitamin B12 [Concomitant]
  8. VITAMIN K [Concomitant]
     Active Substance: PHYTONADIONE
  9. VITAMIN E [Concomitant]
     Active Substance: .ALPHA.-TOCOPHEROL

REACTIONS (16)
  - Diarrhoea [None]
  - Headache [None]
  - Alopecia [None]
  - Rash [None]
  - Cough [None]
  - Hypersensitivity [None]
  - Positive airway pressure therapy [None]
  - Liver function test increased [None]
  - Chest pain [None]
  - Dyspnoea [None]
  - Abdominal pain [None]
  - Pain in extremity [None]
  - Neck pain [None]
  - Pneumonia [None]
  - Therapy interrupted [None]
  - Chest discomfort [None]

NARRATIVE: CASE EVENT DATE: 20251105
